FAERS Safety Report 9853820 (Version 1)
Quarter: 2014Q1

REPORT INFORMATION
  Report Type: Spontaneous
  Country: US (occurrence: US)
  Receive Date: 20140129
  Receipt Date: 20140129
  Transmission Date: 20141002
  Serious: No
  Sender: FDA-Public Use
  Company Number: US-GLAXOSMITHKLINE-A1047323A

PATIENT
  Sex: Female

DRUGS (3)
  1. BUPROPION [Suspect]
     Indication: POSTPARTUM DEPRESSION
     Route: 048
     Dates: start: 1999
  2. WELLBUTRIN [Suspect]
     Indication: POSTPARTUM DEPRESSION
     Dosage: 100MG SEE DOSAGE TEXT
     Route: 048
     Dates: start: 1999
  3. NO CONCURRENT MEDICATION [Concomitant]

REACTIONS (3)
  - Vomiting [Recovered/Resolved]
  - Feeling drunk [Recovered/Resolved]
  - Disturbance in attention [Recovered/Resolved]
